FAERS Safety Report 9509098 (Version 1)
Quarter: 2013Q3

REPORT INFORMATION
  Report Type: Spontaneous
  Country: US (occurrence: US)
  Receive Date: 20130909
  Receipt Date: 20130909
  Transmission Date: 20140515
  Serious: No
  Sender: FDA-Public Use
  Company Number: US-BRISTOL-MYERS SQUIBB COMPANY-19040021

PATIENT
  Sex: 0

DRUGS (6)
  1. ABILIFY [Suspect]
     Indication: MAJOR DEPRESSION
     Dates: start: 201008
  2. CELEXA [Suspect]
  3. SIMVASTATIN [Concomitant]
  4. NAPROSYN [Concomitant]
  5. TRAZODONE HCL [Concomitant]
  6. PLAQUENIL [Concomitant]

REACTIONS (1)
  - Weight increased [Unknown]
